FAERS Safety Report 6860098-8 (Version None)
Quarter: 2010Q3

REPORT INFORMATION
  Report Type: 
  Country: None (occurrence: None)
  Receive Date: 20100720
  Receipt Date: 20100708
  Transmission Date: 20110219
  Serious: Yes (Hospitalization)
  Sender: FDA-Public Use
  Company Number: FR-CELGENEUS-056-50794-10052542

PATIENT
  Sex: Male
  Weight: 75 kg

DRUGS (7)
  1. VIDAZA [Suspect]
     Indication: ACUTE MYELOID LEUKAEMIA
     Route: 058
     Dates: start: 20100506, end: 20100526
  2. VIDAZA [Suspect]
  3. REVLIMID [Suspect]
     Route: 048
     Dates: start: 20100506, end: 20100526
  4. REVLIMID [Suspect]
  5. GRANOCYTE 34 [Concomitant]
     Indication: PRODUCT USED FOR UNKNOWN INDICATION
     Route: 058
     Dates: start: 20100506, end: 20100521
  6. AUGMENTIN '125' [Concomitant]
     Indication: PRODUCT USED FOR UNKNOWN INDICATION
     Route: 048
     Dates: start: 20100518, end: 20100521
  7. CIFLOX [Concomitant]
     Indication: PRODUCT USED FOR UNKNOWN INDICATION
     Route: 048
     Dates: start: 20100518, end: 20100521

REACTIONS (2)
  - ALVEOLITIS ALLERGIC [None]
  - FEBRILE NEUTROPENIA [None]
